FAERS Safety Report 13423107 (Version 7)
Quarter: 2017Q3

REPORT INFORMATION
  Report Type: Report from Study
  Country: ID (occurrence: ID)
  Receive Date: 20170410
  Receipt Date: 20170721
  Transmission Date: 20171127
  Serious: Yes (Death, Life-Threatening, Hospitalization, Other)
  Sender: FDA-Public Use
  Company Number: ID-BAYER-2016-221566

PATIENT
  Age: 41 Year
  Sex: Male

DRUGS (3)
  1. NEXAVAR [Suspect]
     Active Substance: SORAFENIB
     Indication: HEPATOCELLULAR CARCINOMA
     Dosage: 200 MG, BID
     Route: 048
     Dates: start: 20161116, end: 20170328
  2. NEXAVAR [Suspect]
     Active Substance: SORAFENIB
     Indication: HEPATOCELLULAR CARCINOMA
     Dosage: 400 MG, QOD
     Route: 048
     Dates: start: 20170329, end: 20170525
  3. NEXAVAR [Suspect]
     Active Substance: SORAFENIB
     Indication: HEPATOCELLULAR CARCINOMA
     Dosage: 200 MG, QOD
     Dates: start: 20170526, end: 20170617

REACTIONS (32)
  - Melaena [Fatal]
  - Diarrhoea [Recovering/Resolving]
  - Abdominal distension [Not Recovered/Not Resolved]
  - Lip dry [Not Recovered/Not Resolved]
  - Blood albumin decreased [Recovering/Resolving]
  - Asthenia [Recovering/Resolving]
  - Back pain [Recovered/Resolved]
  - Pyrexia [Not Recovered/Not Resolved]
  - Cough [Not Recovered/Not Resolved]
  - Abdominal pain upper [Recovered/Resolved]
  - Coma [Fatal]
  - White blood cell count increased [Not Recovered/Not Resolved]
  - Pyrexia [Recovering/Resolving]
  - Somnolence [None]
  - Myalgia [Not Recovered/Not Resolved]
  - Alanine aminotransferase increased [Not Recovered/Not Resolved]
  - Fungal infection [None]
  - Pain of skin [Recovered/Resolved]
  - Hepatic cirrhosis [Fatal]
  - Haematemesis [Fatal]
  - Hepatocellular carcinoma [Fatal]
  - Aspartate aminotransferase increased [Not Recovered/Not Resolved]
  - Insomnia [None]
  - Nausea [Not Recovered/Not Resolved]
  - Myalgia [Recovered/Resolved]
  - Rash [Recovering/Resolving]
  - Inappropriate schedule of drug administration [None]
  - Metastasis [Fatal]
  - Gastrooesophageal reflux disease [Not Recovered/Not Resolved]
  - Dizziness [Not Recovered/Not Resolved]
  - Loss of personal independence in daily activities [Recovered/Resolved]
  - Thrombocytopenia [Not Recovered/Not Resolved]

NARRATIVE: CASE EVENT DATE: 20161116
